FAERS Safety Report 9677759 (Version 2)
Quarter: 2014Q1

REPORT INFORMATION
  Report Type: Spontaneous
  Country: DE (occurrence: DE)
  Receive Date: 20131108
  Receipt Date: 20140211
  Transmission Date: 20141002
  Serious: Yes (Hospitalization)
  Sender: FDA-Public Use
  Company Number: DE-JNJFOC-20131102898

PATIENT
  Age: 90 Year
  Sex: Male
  Weight: 66 kg

DRUGS (6)
  1. XARELTO [Suspect]
     Indication: CEREBROVASCULAR ACCIDENT PROPHYLAXIS
     Route: 048
  2. XARELTO [Suspect]
     Indication: ATRIAL FIBRILLATION
     Route: 048
  3. DIGITOXIN [Concomitant]
     Indication: ATRIAL FIBRILLATION
     Route: 048
  4. CARVEDILOL [Concomitant]
     Indication: CARDIAC FAILURE
     Route: 048
  5. FUROSEMID [Concomitant]
     Indication: CARDIAC FAILURE
     Route: 065
  6. TRIAMTEREN HCT [Concomitant]
     Indication: CARDIAC FAILURE
     Route: 065

REACTIONS (2)
  - Hepatotoxicity [Recovering/Resolving]
  - Jaundice [Recovering/Resolving]
